FAERS Safety Report 9385704 (Version 1)
Quarter: 2013Q3

REPORT INFORMATION
  Report Type: Spontaneous
  Country: IN (occurrence: IN)
  Receive Date: 20130705
  Receipt Date: 20130705
  Transmission Date: 20140515
  Serious: Yes (Death)
  Sender: FDA-Public Use
  Company Number: IN-SANOFI-AVENTIS-2013SA065897

PATIENT
  Age: 36 Year
  Sex: Female

DRUGS (1)
  1. ARAVA [Suspect]
     Indication: POLYARTHRITIS
     Route: 048

REACTIONS (5)
  - Budd-Chiari syndrome [Fatal]
  - Vasodilatation [Fatal]
  - Vasculitis [Fatal]
  - Autoimmune hepatitis [Fatal]
  - Liver function test abnormal [Fatal]
